FAERS Safety Report 8890978 (Version 1)
Quarter: 2012Q4

REPORT INFORMATION
  Report Type: 
  Country: US (occurrence: US)
  Receive Date: 20121107
  Receipt Date: 20121107
  Transmission Date: 20130627
  Serious: No
  Sender: FDA-Public Use
  Company Number: US-VERTEX PHARMACEUTICAL INC.-2012-019942

PATIENT

DRUGS (14)
  1. KALYDECO [Suspect]
     Indication: CYSTIC FIBROSIS
     Dosage: 150 mg, bid
     Dates: start: 201205
  2. REMERON [Concomitant]
  3. CREON [Concomitant]
  4. FLONASE [Concomitant]
  5. FLUTICASONE [Concomitant]
  6. ZITHROMAX [Concomitant]
  7. CELEXA                             /00582602/ [Concomitant]
  8. VENTOLIN                           /00139501/ [Concomitant]
  9. VITAMINS                           /00067501/ [Concomitant]
  10. FOLIC ACID [Concomitant]
  11. MIRALAX                            /00754501/ [Concomitant]
  12. PULMOZYME [Concomitant]
  13. SODIUM CHLORIDE [Concomitant]
  14. EPIPEN [Concomitant]

REACTIONS (1)
  - Rash [Not Recovered/Not Resolved]
